FAERS Safety Report 10413295 (Version 1)
Quarter: 2014Q3

REPORT INFORMATION
  Report Type: Spontaneous
  Country: CN (occurrence: CN)
  Receive Date: 20140827
  Receipt Date: 20140827
  Transmission Date: 20150326
  Serious: Yes (Hospitalization, Disabling)
  Sender: FDA-Public Use
  Company Number: CN-PFIZER INC-2014233577

PATIENT
  Age: 86 Year
  Sex: Female
  Weight: 70 kg

DRUGS (1)
  1. LIPITOR [Suspect]
     Active Substance: ATORVASTATIN CALCIUM
     Indication: CEREBRAL INFARCTION
     Dosage: 10 MG, 1X/DAY
     Route: 048
     Dates: start: 20121107, end: 20131219

REACTIONS (3)
  - Rhabdomyolysis [Recovering/Resolving]
  - Abdominal discomfort [Recovering/Resolving]
  - Muscle tone disorder [Recovering/Resolving]

NARRATIVE: CASE EVENT DATE: 20131219
